FAERS Safety Report 10360919 (Version 1)
Quarter: 2014Q3

REPORT INFORMATION
  Report Type: Spontaneous
  Country: DE (occurrence: None)
  Receive Date: 20140731
  Receipt Date: 20140731
  Transmission Date: 20150326
  Serious: Yes (Hospitalization, Other)
  Sender: FDA-Public Use
  Company Number: IMP_07751_2014

PATIENT
  Age: 73 Year
  Sex: Male

DRUGS (2)
  1. AMITRIPTYLINE (AMITRIPTYLINE) [Suspect]
     Active Substance: AMITRIPTYLINE
     Indication: DEPRESSION
  2. VALPROIC ACID (VALPROIC ACID) [Suspect]
     Active Substance: VALPROIC ACID
     Indication: DEPRESSION
     Dosage: DOSES UP TO 1200 MG PER DAY

REACTIONS (14)
  - Tremor [None]
  - Delirium [None]
  - Activities of daily living impaired [None]
  - Dysarthria [None]
  - Disorientation [None]
  - Hyperhidrosis [None]
  - Dizziness [None]
  - Ataxia [None]
  - Drug interaction [None]
  - Drug level above therapeutic [None]
  - Constipation [None]
  - Muscle rigidity [None]
  - Somnolence [None]
  - Agitation [None]
